FAERS Safety Report 19222170 (Version 1)
Quarter: 2021Q2

REPORT INFORMATION
  Report Type: Spontaneous
  Country: FR (occurrence: FR)
  Receive Date: 20210505
  Receipt Date: 20210505
  Transmission Date: 20210717
  Serious: Yes (Death)
  Sender: FDA-Public Use
  Company Number: FR-BAUSCH-BL-2021-014499

PATIENT
  Age: 60 Year
  Sex: Female
  Weight: 65 kg

DRUGS (11)
  1. FLUCONAZOLE. [Suspect]
     Active Substance: FLUCONAZOLE
     Indication: INFECTION
     Route: 048
     Dates: start: 20180826, end: 20180902
  2. BISOPROLOL (HEMIFUMARATE DE) [Concomitant]
     Active Substance: BISOPROLOL FUMARATE
     Indication: PRODUCT USED FOR UNKNOWN INDICATION
  3. PANTOPRAZOLE [Suspect]
     Active Substance: PANTOPRAZOLE
     Indication: PRODUCT USED FOR UNKNOWN INDICATION
     Route: 048
     Dates: start: 20180818, end: 20180905
  4. HEPARINE SODIQUE [Suspect]
     Active Substance: HEPARIN SODIUM
     Indication: ATRIAL FIBRILLATION
     Route: 042
     Dates: start: 20180818, end: 20180902
  5. AMIODARONE [Concomitant]
     Active Substance: AMIODARONE
     Indication: PRODUCT USED FOR UNKNOWN INDICATION
  6. RAMIPRIL. [Concomitant]
     Active Substance: RAMIPRIL
     Indication: PRODUCT USED FOR UNKNOWN INDICATION
  7. IMIPENEM ANHYDRE [Suspect]
     Active Substance: IMIPENEM
     Indication: INFECTION
     Route: 042
     Dates: start: 20180831, end: 20180905
  8. TRAMADOL (CHLORHYDRATE DE) [Suspect]
     Active Substance: TRAMADOL HYDROCHLORIDE
     Indication: PAIN
     Dosage: LP FORM
     Route: 048
     Dates: start: 20180828, end: 20180905
  9. VENLAFAXINE [Suspect]
     Active Substance: VENLAFAXINE HYDROCHLORIDE
     Indication: ANXIETY
     Route: 048
     Dates: start: 20180826, end: 20180905
  10. LOVENOX [Suspect]
     Active Substance: ENOXAPARIN SODIUM
     Indication: ATRIAL FIBRILLATION
     Dosage: STRENGTH: 4000 IU/0.4 ML
     Route: 058
     Dates: start: 20180729, end: 20180815
  11. CILASTATINE ANHYDRE [Suspect]
     Active Substance: CILASTATIN
     Indication: INFECTION
     Route: 042
     Dates: start: 20180831, end: 20180905

REACTIONS (1)
  - Heparin-induced thrombocytopenia [Fatal]

NARRATIVE: CASE EVENT DATE: 20180902
